FAERS Safety Report 25350601 (Version 1)
Quarter: 2025Q2

REPORT INFORMATION
  Report Type: Spontaneous
  Country: FR (occurrence: FR)
  Receive Date: 20250523
  Receipt Date: 20250523
  Transmission Date: 20250717
  Serious: Yes (Other)
  Sender: SANDOZ
  Company Number: None

PATIENT
  Age: 63 Year
  Sex: Female

DRUGS (4)
  1. ATRACURIUM [Suspect]
     Active Substance: ATRACURIUM
     Indication: Antibiotic therapy
     Dosage: 1 DOSAGE FORM, QD
     Route: 023
     Dates: start: 20240708
  2. ROCURONIUM BROMIDE [Suspect]
     Active Substance: ROCURONIUM BROMIDE
     Indication: Antibiotic therapy
     Dosage: 1 DOSAGE FORM, QD
     Route: 023
     Dates: start: 20240708
  3. CISATRACURIUM BESYLATE [Suspect]
     Active Substance: CISATRACURIUM BESYLATE
     Indication: Antibiotic therapy
     Dosage: 1 DOSAGE FORM, QD
     Route: 023
     Dates: start: 20240708
  4. SUCCINYLCHOLINE [Suspect]
     Active Substance: SUCCINYLCHOLINE
     Indication: Antibiotic therapy
     Dosage: 1 DOSAGE FORM, QD
     Route: 023
     Dates: start: 20240708

REACTIONS (3)
  - Off label use [Unknown]
  - Off label use [Unknown]
  - Skin test positive [Recovered/Resolved]

NARRATIVE: CASE EVENT DATE: 20240708
